FAERS Safety Report 8443407 (Version 2)
Quarter: 2014Q2

REPORT INFORMATION
  Report Type: Spontaneous
  Country: JP (occurrence: JP)
  Receive Date: 20120306
  Receipt Date: 20140428
  Transmission Date: 20141212
  Serious: Yes (Other)
  Sender: FDA-Public Use
  Company Number: JP-GLAXOSMITHKLINE-B0674025A

PATIENT
  Age: 66 Year
  Sex: Male
  Weight: 62 kg

DRUGS (8)
  1. ZOVIRAX [Suspect]
     Indication: HERPES ZOSTER
     Dosage: 250MG THREE TIMES PER DAY
     Route: 042
     Dates: start: 20100902, end: 20100904
  2. ZOVIRAX [Suspect]
     Indication: HERPES ZOSTER
     Dosage: 250MG PER DAY
     Route: 042
     Dates: start: 20100905
  3. BAKTAR [Concomitant]
     Dosage: 1IUAX PER DAY
     Route: 048
  4. ITRIZOLE [Concomitant]
     Route: 048
  5. CORTRIL [Concomitant]
     Dosage: 20MG PER DAY
     Route: 048
  6. ISCOTIN [Concomitant]
     Route: 048
  7. PARIET [Concomitant]
     Dosage: 10MG PER DAY
     Route: 048
  8. BARACLUDE [Concomitant]
     Dosage: .5MG PER DAY
     Route: 048

REACTIONS (9)
  - Encephalopathy [Unknown]
  - Delirium [Recovered/Resolved]
  - Hallucination [Recovered/Resolved]
  - Insomnia [Unknown]
  - Abnormal behaviour [Unknown]
  - Psychiatric symptom [Unknown]
  - Logorrhoea [Recovered/Resolved]
  - Blister [Unknown]
  - Scab [Unknown]
